FAERS Safety Report 7938290-0 (Version None)
Quarter: 2011Q4

REPORT INFORMATION
  Report Type: 
  Country: None (occurrence: None)
  Receive Date: 20111123
  Receipt Date: 20111114
  Transmission Date: 20120403
  Serious: Yes (Hospitalization, Other)
  Sender: FDA-Public Use
  Company Number: US-ELI_LILLY_AND_COMPANY-US201111004949

PATIENT
  Age: 39 Year
  Sex: Male

DRUGS (8)
  1. METFORMIN [Concomitant]
     Dosage: 2000 MG, QD
  2. SIMVASTATIN [Concomitant]
     Dosage: 40 MG, BID
  3. HUMULIN R [Suspect]
     Indication: DIABETES MELLITUS
     Dosage: UNK, UNKNOWN
  4. CAPTOPRIL [Concomitant]
     Dosage: 12.5 MG, QD
  5. HUMALOG MIX 75/25 [Suspect]
     Dosage: 20 U, EACH EVENING
  6. HUMALOG MIX 75/25 [Suspect]
     Dosage: 22 U, EACH EVENING
  7. METOPROLOL TARTRATE [Concomitant]
     Dosage: 25 MG, QD
  8. HUMALOG MIX 75/25 [Suspect]
     Indication: DIABETES MELLITUS
     Dosage: 32 U, EACH MORNING

REACTIONS (4)
  - DRUG INEFFECTIVE [None]
  - BLOOD GLUCOSE INCREASED [None]
  - MYOCARDIAL INFARCTION [None]
  - CORONARY ARTERY BYPASS [None]
